FAERS Safety Report 7638495-2 (Version None)
Quarter: 2011Q3

REPORT INFORMATION
  Report Type: 
  Country: None (occurrence: None)
  Receive Date: 20110727
  Receipt Date: 20110713
  Transmission Date: 20111222
  Serious: Yes (Disabling, Other)
  Sender: FDA-Public Use
  Company Number: PHHY2011AT54605

PATIENT
  Age: 46 Year
  Sex: Male

DRUGS (2)
  1. TEGRETOL [Suspect]
     Indication: TRIGEMINAL NEURALGIA
     Dosage: 100 MG, TWICE DAILY
     Dates: start: 20110526, end: 20110618
  2. PRAMIPEXOLE DIHYCHLLORIDE [Concomitant]

REACTIONS (14)
  - ERYTHEMA [None]
  - RASH PUSTULAR [None]
  - SKIN LESION [None]
  - RASH [None]
  - DRUG INTOLERANCE [None]
  - HYPOAESTHESIA [None]
  - ASTHMA [None]
  - DRY SKIN [None]
  - SKIN DISORDER [None]
  - DEPRESSION [None]
  - TEMPERATURE INTOLERANCE [None]
  - PRURITUS [None]
  - OSTEOPOROSIS [None]
  - RESTLESS LEGS SYNDROME [None]
